FAERS Safety Report 16310795 (Version 4)
Quarter: 2019Q2

REPORT INFORMATION
  Report Type: Spontaneous
  Country: US (occurrence: US)
  Receive Date: 20190514
  Receipt Date: 20190606
  Transmission Date: 20190711
  Serious: No
  Sender: FDA-Public Use
  Company Number: US-PFIZER INC-2019201236

PATIENT
  Age: 62 Year
  Sex: Female
  Weight: 95 kg

DRUGS (4)
  1. FASLODEX [Suspect]
     Active Substance: FULVESTRANT
     Dosage: UNK
     Dates: start: 201709
  2. XGEVA [Suspect]
     Active Substance: DENOSUMAB
     Dosage: UNK
     Dates: start: 201709
  3. IBRANCE [Suspect]
     Active Substance: PALBOCICLIB
     Dosage: 125 MG, DAILY (FOR 21 DAYS ON, 7 DAYS OFF)
     Route: 048
     Dates: end: 201903
  4. IBRANCE [Suspect]
     Active Substance: PALBOCICLIB
     Indication: BREAST CANCER METASTATIC
     Dosage: 125 MG, DAILY (FOR 23 DAYS ON, 7 DAYS OFF)
     Route: 048
     Dates: start: 201709

REACTIONS (2)
  - Neoplasm progression [Unknown]
  - BRCA2 gene mutation [Unknown]

NARRATIVE: CASE EVENT DATE: 201903
